FAERS Safety Report 9374446 (Version 1)
Quarter: 2013Q2

REPORT INFORMATION
  Report Type: Spontaneous
  Country: US (occurrence: US)
  Receive Date: 20130628
  Receipt Date: 20130628
  Transmission Date: 20140414
  Serious: No
  Sender: FDA-Public Use
  Company Number: US-PFIZER INC-2013191326

PATIENT
  Age: 3 Year
  Sex: Male
  Weight: 15.42 kg

DRUGS (1)
  1. CHILDRENS ADVIL [Suspect]
     Indication: PYREXIA
     Dosage: UNK, AS NEEDED
     Dates: start: 20130619, end: 20130622

REACTIONS (1)
  - Rash [Not Recovered/Not Resolved]
